FAERS Safety Report 5705174-8 (Version None)
Quarter: 2008Q2

REPORT INFORMATION
  Report Type: 
  Country: None (occurrence: None)
  Receive Date: 20080410
  Receipt Date: 20080401
  Transmission Date: 20081010
  Serious: Yes (Other)
  Sender: FDA-Public Use
  Company Number: 163-21880-08040158

PATIENT
  Age: 57 Year
  Sex: Male

DRUGS (7)
  1. REVLIMID [Suspect]
     Indication: MULTIPLE MYELOMA
     Dosage: 15 MG, DAYS 1-21 Q 28 DAYS, ORAL
     Route: 048
     Dates: start: 20070301, end: 20080326
  2. DEXAMETHASONE TAB [Concomitant]
  3. PAMIDRONATE DISODIUM [Concomitant]
  4. CURCUMIN (TURMERIC) [Concomitant]
  5. LIPITOR [Concomitant]
  6. CENTRUM (CENTRUM) [Concomitant]
  7. COUMADIN [Concomitant]

REACTIONS (5)
  - MUSCLE SPASMS [None]
  - MYELODYSPLASTIC SYNDROME [None]
  - NEUROPATHY PERIPHERAL [None]
  - PANCYTOPENIA [None]
  - REFRACTORY ANAEMIA WITH AN EXCESS OF BLASTS [None]
